FAERS Safety Report 22325239 (Version 1)
Quarter: 2023Q2

REPORT INFORMATION
  Report Type: Spontaneous
  Country: US (occurrence: None)
  Receive Date: 20230515
  Receipt Date: 20230515
  Transmission Date: 20230722
  Serious: Yes (Other)
  Sender: FDA-Public Use
  Company Number: None

PATIENT
  Age: 52 Year
  Sex: Male

DRUGS (9)
  1. HUMIRA [Suspect]
     Active Substance: ADALIMUMAB
     Indication: Psoriasis
     Dosage: OTHER FREQUENCY : Q14DAYS;?
     Route: 058
     Dates: start: 20230322
  2. TRULICITY [Concomitant]
     Active Substance: DULAGLUTIDE
  3. LANTUS SOLOSTAR [Concomitant]
     Active Substance: INSULIN GLARGINE
  4. NOVOLOG [Concomitant]
     Active Substance: INSULIN ASPART
  5. COREG [Concomitant]
     Active Substance: CARVEDILOL
     Dosage: OTHER QUANTITY : 3.125 MG;?
  6. LEXAPRO [Concomitant]
     Active Substance: ESCITALOPRAM OXALATE
  7. ASPIRIN [Concomitant]
     Active Substance: ASPIRIN
  8. CLOBETASOL PROP CREAM [Concomitant]
  9. TRIAMCINOLONE [Concomitant]
     Active Substance: TRIAMCINOLONE

REACTIONS (1)
  - Inappropriate schedule of product administration [None]

NARRATIVE: CASE EVENT DATE: 20230515
